FAERS Safety Report 17388459 (Version 1)
Quarter: 2020Q1

REPORT INFORMATION
  Report Type: Other
  Country: GB (occurrence: GB)
  Receive Date: 20200206
  Receipt Date: 20200206
  Transmission Date: 20200409
  Serious: Yes (Hospitalization, Other)
  Sender: FDA-Public Use
  Company Number: GB-VALIDUS PHARMACEUTICALS LLC-GB-2020VAL000085

PATIENT

DRUGS (2)
  1. FUROSEMIDE. [Suspect]
     Active Substance: FUROSEMIDE
     Indication: JOINT SWELLING
     Dosage: 20 MG, PRN
     Route: 048
     Dates: start: 201806, end: 201806
  2. PHENTERMINE. [Suspect]
     Active Substance: PHENTERMINE
     Indication: WEIGHT DECREASED
     Dosage: UNK
     Route: 048
     Dates: start: 201805, end: 201806

REACTIONS (3)
  - Acute kidney injury [Recovered/Resolved]
  - Seizure [Recovered/Resolved]
  - Accelerated hypertension [Recovered/Resolved with Sequelae]

NARRATIVE: CASE EVENT DATE: 20180727
